FAERS Safety Report 18624142 (Version 1)
Quarter: 2020Q4

REPORT INFORMATION
  Report Type: Report from Study
  Country: NL (occurrence: NL)
  Receive Date: 20201216
  Receipt Date: 20201216
  Transmission Date: 20210114
  Serious: Yes (Hospitalization, Other)
  Sender: FDA-Public Use
  Company Number: NVSC2020NL280272

PATIENT
  Age: 25 Year
  Sex: Female

DRUGS (6)
  1. ILARIS [Suspect]
     Active Substance: CANAKINUMAB
     Dosage: 1 DF, Q4W
     Route: 058
     Dates: start: 20201013
  2. ILARIS [Suspect]
     Active Substance: CANAKINUMAB
     Indication: CHRONIC INFANTILE NEUROLOGICAL CUTANEOUS AND ARTICULAR SYNDROME
     Dosage: 1 DF, Q4W
     Route: 058
  3. ILARIS [Suspect]
     Active Substance: CANAKINUMAB
     Dosage: 1 DF, Q4W
     Route: 058
     Dates: start: 20140228
  4. ILARIS [Suspect]
     Active Substance: CANAKINUMAB
     Dosage: 1 DF, Q4W
     Route: 058
     Dates: start: 20201110
  5. ILARIS [Suspect]
     Active Substance: CANAKINUMAB
     Dosage: 1 DF, Q4W
     Route: 058
     Dates: start: 20200915
  6. ILARIS [Suspect]
     Active Substance: CANAKINUMAB
     Dosage: 1 DF, Q4W
     Route: 058
     Dates: start: 20201208

REACTIONS (5)
  - Musculoskeletal stiffness [Not Recovered/Not Resolved]
  - Headache [Not Recovered/Not Resolved]
  - Off label use [Unknown]
  - Mydriasis [Not Recovered/Not Resolved]
  - Meningitis [Unknown]

NARRATIVE: CASE EVENT DATE: 20201006
